FAERS Safety Report 23400569 (Version 1)
Quarter: 2024Q1

REPORT INFORMATION
  Report Type: Spontaneous
  Country: FR (occurrence: FR)
  Receive Date: 20240115
  Receipt Date: 20240115
  Transmission Date: 20240410
  Serious: Yes (Hospitalization)
  Sender: FDA-Public Use
  Company Number: None

PATIENT
  Age: 25 Year
  Sex: Female

DRUGS (4)
  1. PREDNISONE [Suspect]
     Active Substance: PREDNISONE
     Indication: Transplant rejection
     Dosage: DAILY DOSE: 5 MILLIGRAM
     Route: 048
     Dates: start: 20231202
  2. VALGANCICLOVIR [Suspect]
     Active Substance: VALGANCICLOVIR
     Indication: Cytomegalovirus test positive
     Dosage: BID?DAILY DOSE: 900 MILLIGRAM
     Route: 048
     Dates: start: 20230930
  3. MYCOPHENOLATE MOFETIL [Suspect]
     Active Substance: MYCOPHENOLATE MOFETIL
     Indication: Organ transplant
     Dosage: BID?DAILY DOSE: 1 GRAM
     Route: 048
     Dates: start: 20230930
  4. PROGRAF [Suspect]
     Active Substance: TACROLIMUS
     Indication: Organ transplant
     Dosage: BID?DAILY DOSE: 5 MILLIGRAM
     Route: 048
     Dates: start: 20230930

REACTIONS (3)
  - Cell death [Unknown]
  - Headache [Recovering/Resolving]
  - Off label use [Unknown]

NARRATIVE: CASE EVENT DATE: 20231001
